FAERS Safety Report 23497262 (Version 5)
Quarter: 2024Q1

REPORT INFORMATION
  Report Type: Spontaneous
  Country: US (occurrence: US)
  Receive Date: 20240208
  Receipt Date: 20240329
  Transmission Date: 20240410
  Serious: No
  Sender: FDA-Public Use
  Company Number: US-PFIZER INC-PV202400009374

PATIENT
  Age: 9 Year
  Sex: Male
  Weight: 20.87 kg

DRUGS (1)
  1. GENOTROPIN [Suspect]
     Active Substance: SOMATROPIN
     Indication: Short stature
     Dosage: 0.7 MG PER DAY, 7 DAYS PER WEEK, ONCE A DAY
     Route: 058

REACTIONS (2)
  - Device mechanical issue [Unknown]
  - Device malfunction [Unknown]
